FAERS Safety Report 9978062 (Version 1)
Quarter: 2014Q1

REPORT INFORMATION
  Report Type: Spontaneous
  Country: US (occurrence: US)
  Receive Date: 20140306
  Receipt Date: 20140306
  Transmission Date: 20141002
  Serious: Yes (Hospitalization, Other)
  Sender: FDA-Public Use
  Company Number: US-PFIZER INC-2014062684

PATIENT
  Age: 78 Year
  Sex: Female

DRUGS (5)
  1. SERTRALINE HCL [Suspect]
     Indication: DEPRESSION
     Dosage: 300 MG, UNK
  2. SERTRALINE HCL [Suspect]
     Dosage: 200 MG, UNK
  3. ZOLOFT [Suspect]
     Indication: DEPRESSION
     Dosage: 300 MG, UNK
  4. ZOLOFT [Suspect]
     Dosage: 200 MG, UNK
  5. TOPAMAX [Concomitant]
     Dosage: UNK

REACTIONS (6)
  - Suicide attempt [Unknown]
  - Suicidal ideation [Unknown]
  - Off label use [Unknown]
  - Drug ineffective [Unknown]
  - Aggression [Unknown]
  - Anger [Unknown]
